FAERS Safety Report 10539530 (Version 1)
Quarter: 2014Q4

REPORT INFORMATION
  Report Type: Spontaneous
  Country: US (occurrence: US)
  Receive Date: 20141023
  Receipt Date: 20141023
  Transmission Date: 20150529
  Serious: No
  Sender: FDA-Public Use
  Company Number: US-ALLERGAN-1414923US

PATIENT
  Sex: Female

DRUGS (3)
  1. COMBIGAN[R] [Suspect]
     Active Substance: BRIMONIDINE TARTRATE\TIMOLOL MALEATE
     Indication: GLAUCOMA
  2. ZYRTEC [Concomitant]
     Active Substance: CETIRIZINE HYDROCHLORIDE
     Indication: ALLERGY TO PLANTS
     Dosage: UNK
  3. ACYCLOVIR. [Concomitant]
     Active Substance: ACYCLOVIR
     Indication: HERPES ZOSTER
     Dosage: 800 MG, QD
     Route: 048

REACTIONS (4)
  - Abnormal sensation in eye [Unknown]
  - Intraocular pressure increased [Not Recovered/Not Resolved]
  - Visual acuity reduced [Not Recovered/Not Resolved]
  - Eye pain [Not Recovered/Not Resolved]
